FAERS Safety Report 7503429-8 (Version None)
Quarter: 2011Q2

REPORT INFORMATION
  Report Type: 
  Country: None (occurrence: None)
  Receive Date: 20110525
  Receipt Date: 20110516
  Transmission Date: 20111010
  Serious: Yes (Hospitalization)
  Sender: FDA-Public Use
  Company Number: DE-ASTRAZENECA-2011SE19771

PATIENT
  Age: 60 Year
  Sex: Female
  Weight: 68 kg

DRUGS (4)
  1. PANTOPRAZOL [Concomitant]
     Route: 048
  2. IRESSA [Suspect]
     Indication: NON-SMALL CELL LUNG CANCER
     Route: 048
     Dates: start: 20110121
  3. URBASON [Concomitant]
     Route: 048
  4. ESTRADIOL [Concomitant]
     Route: 048

REACTIONS (4)
  - NAUSEA [None]
  - CEREBRAL DECOMPRESSION [None]
  - INTRACRANIAL PRESSURE INCREASED [None]
  - HEADACHE [None]
